FAERS Safety Report 22856644 (Version 2)
Quarter: 2023Q4

REPORT INFORMATION
  Report Type: Report from Study
  Country: US (occurrence: US)
  Receive Date: 20230823
  Receipt Date: 20231019
  Transmission Date: 20240110
  Serious: Yes (Hospitalization)
  Sender: FDA-Public Use
  Company Number: US-REGENERON PHARMACEUTICALS, INC.-2023-102332

PATIENT
  Age: 70 Year
  Sex: Female
  Weight: 60.77 kg

DRUGS (4)
  1. SARILUMAB [Suspect]
     Active Substance: SARILUMAB
     Indication: Malignant melanoma
     Dosage: 175 MG/ML, Q2M
     Route: 058
     Dates: start: 20230619, end: 20230619
  2. NIVOLUMAB [Suspect]
     Active Substance: NIVOLUMAB
     Indication: Malignant melanoma
     Dosage: 4000 MG, Q4W
     Route: 042
     Dates: start: 20230619
  3. RELATLIMAB [Suspect]
     Active Substance: RELATLIMAB
     Indication: Malignant melanoma
     Dosage: 160 MG, Q4W
     Route: 042
     Dates: start: 20230619
  4. IPILIMUMAB [Suspect]
     Active Substance: IPILIMUMAB
     Indication: Malignant melanoma
     Dosage: 1 MG/KG, Q8W
     Route: 042
     Dates: start: 20230619

REACTIONS (2)
  - Rash [Recovered/Resolved with Sequelae]
  - Hypotension [Recovered/Resolved with Sequelae]

NARRATIVE: CASE EVENT DATE: 20230714
